FAERS Safety Report 9753870 (Version 1)
Quarter: 2013Q4

REPORT INFORMATION
  Report Type: Spontaneous
  Country: US (occurrence: US)
  Receive Date: 20131213
  Receipt Date: 20131213
  Transmission Date: 20140711
  Serious: No
  Sender: FDA-Public Use
  Company Number: US-GILEAD-2010-0027733

PATIENT
  Sex: Female
  Weight: 81.65 kg

DRUGS (16)
  1. LETAIRIS [Suspect]
     Indication: PULMONARY ARTERIAL HYPERTENSION
     Route: 048
     Dates: start: 20100225
  2. METHOCARBAMOL [Concomitant]
  3. SINGULAIR [Concomitant]
  4. REQUIP [Concomitant]
  5. TOLECTIN [Concomitant]
  6. DIFLUNISAL [Concomitant]
  7. LISINOPRIL [Concomitant]
  8. DOXAZOSIN [Concomitant]
  9. MULTIVITAMIN [Concomitant]
  10. ARMOUR THYROID [Concomitant]
  11. ASCORBIC ACID [Concomitant]
  12. SENNA [Concomitant]
  13. IMPRAMINE [Concomitant]
  14. DOCUSATE SODIUM [Concomitant]
  15. MAXZIDE [Concomitant]
  16. ASPIRIN 81 [Concomitant]

REACTIONS (3)
  - Nausea [Unknown]
  - Swelling [Unknown]
  - Headache [Unknown]
